FAERS Safety Report 4980272-5 (Version None)
Quarter: 2006Q2

REPORT INFORMATION
  Report Type: 
  Country: None (occurrence: None)
  Receive Date: 20060418
  Receipt Date: 20060403
  Transmission Date: 20061013
  Serious: Yes (Death)
  Sender: FDA-Public Use
  Company Number: 2006-BP-03656RO

PATIENT
  Age: 45 Year
  Sex: Female

DRUGS (3)
  1. METHADONE HCL [Suspect]
  2. SERTRALINE [Suspect]
  3. ALCOHOL (ETHANOL) [Suspect]

REACTIONS (4)
  - DIABETIC KETOACIDOSIS [None]
  - DIABETIC NEPHROPATHY [None]
  - DRUG TOXICITY [None]
  - HEPATIC STEATOSIS [None]
